FAERS Safety Report 17169604 (Version 1)
Quarter: 2019Q4

REPORT INFORMATION
  Report Type: Spontaneous
  Country: US (occurrence: US)
  Receive Date: 20191218
  Receipt Date: 20191218
  Transmission Date: 20200122
  Serious: No
  Sender: FDA-Public Use
  Company Number: US-VERTEX PHARMACEUTICALS-2019-011600

PATIENT
  Age: 21 Year
  Sex: Female

DRUGS (1)
  1. TRIKAFTA [Suspect]
     Active Substance: ELEXACAFTOR\IVACAFTOR\TEZACAFTOR
     Indication: CYSTIC FIBROSIS
     Dosage: ELEXACAFTOR 100MG/ TEZACAFTOR 50MG/ IVACAFTOR 75MG/IVACAFTOR 150MG, UNK FREQ
     Route: 048
     Dates: start: 20191114

REACTIONS (7)
  - Dyspnoea [Unknown]
  - Asthenia [Not Recovered/Not Resolved]
  - Aphonia [Unknown]
  - Chest discomfort [Unknown]
  - Fatigue [Unknown]
  - Oropharyngeal pain [Unknown]
  - Back pain [Recovered/Resolved]

NARRATIVE: CASE EVENT DATE: 2019
